FAERS Safety Report 5685252-2 (Version None)
Quarter: 2008Q1

REPORT INFORMATION
  Report Type: 
  Country: None (occurrence: None)
  Receive Date: 20080328
  Receipt Date: 20080318
  Transmission Date: 20080703
  Serious: Yes (Other)
  Sender: FDA-Public Use
  Company Number: JP-PFIZER INC-2008015878

PATIENT
  Age: 80 Year
  Sex: Male

DRUGS (7)
  1. DETRUSITOL SR [Suspect]
     Indication: HYPERTONIC BLADDER
     Dosage: DAILY DOSE:4MG
     Route: 048
  2. URIEF [Suspect]
     Indication: BENIGN PROSTATIC HYPERPLASIA
     Route: 048
  3. EPADEL [Concomitant]
     Route: 048
  4. LAC B [Concomitant]
     Route: 048
  5. ALOSITOL [Concomitant]
     Route: 048
  6. MAGNESIUM OXIDE [Concomitant]
  7. DAI-KENCHU-TO [Concomitant]
     Route: 048

REACTIONS (1)
  - FAECES DISCOLOURED [None]
